FAERS Safety Report 13617851 (Version 1)
Quarter: 2017Q2

REPORT INFORMATION
  Report Type: Spontaneous
  Country: US (occurrence: US)
  Receive Date: 20170606
  Receipt Date: 20170606
  Transmission Date: 20170830
  Serious: No
  Sender: FDA-Public Use
  Company Number: US-TARO-2016TAR00605

PATIENT
  Age: 3 Year
  Sex: Male
  Weight: 13.38 kg

DRUGS (1)
  1. FEVERALL [Suspect]
     Active Substance: ACETAMINOPHEN
     Dosage: 1.5 DOSAGE UNITS, ONCE
     Route: 054
     Dates: start: 20160704, end: 20160704

REACTIONS (1)
  - Faeces discoloured [Unknown]

NARRATIVE: CASE EVENT DATE: 20160705
